FAERS Safety Report 22323071 (Version 1)
Quarter: 2023Q2

REPORT INFORMATION
  Report Type: Spontaneous
  Country: US (occurrence: None)
  Receive Date: 20230512
  Receipt Date: 20230512
  Transmission Date: 20230722
  Serious: Yes (Other)
  Sender: FDA-Public Use
  Company Number: None

PATIENT
  Age: 60 Year
  Sex: Male
  Weight: 126 kg

DRUGS (29)
  1. LIDOCAINE 2.5% AND PRILOCAINE 2.5% CREAM [Suspect]
     Active Substance: LIDOCAINE\PRILOCAINE
     Indication: Medical procedure
     Dosage: OTHER QUANTITY : 1 1 TUBE;?OTHER FREQUENCY : APPLY AS NEEDED;?
     Route: 061
     Dates: start: 20230426, end: 20230511
  2. LIDOCAINE 2.5% AND PRILOCAINE 2.5% CREAM [Suspect]
     Active Substance: LIDOCAINE\PRILOCAINE
     Indication: Pain
  3. ACETAMINOPHEN\OXYCODONE HYDROCHLORIDE [Concomitant]
     Active Substance: ACETAMINOPHEN\OXYCODONE HYDROCHLORIDE
  4. FENOFIBRATE [Concomitant]
     Active Substance: FENOFIBRATE
  5. PROMETHAZINE [Concomitant]
     Active Substance: PROMETHAZINE HYDROCHLORIDE
  6. ROSUVASTATIN [Concomitant]
     Active Substance: ROSUVASTATIN
  7. FERROUS SULFATE [Concomitant]
     Active Substance: FERROUS SULFATE
  8. TRELEGY ELLIPTA [Concomitant]
     Active Substance: FLUTICASONE FUROATE\UMECLIDINIUM BROMIDE\VILANTEROL TRIFENATATE
  9. BACLOFEN [Concomitant]
     Active Substance: BACLOFEN
  10. methlMazole [Concomitant]
  11. PANTOPRAZOLE [Concomitant]
     Active Substance: PANTOPRAZOLE
  12. pen needles [Concomitant]
  13. AMITRIPTYLINE [Concomitant]
     Active Substance: AMITRIPTYLINE
  14. JARDIANCE [Concomitant]
     Active Substance: EMPAGLIFLOZIN
  15. METFORMIN [Concomitant]
     Active Substance: METFORMIN HYDROCHLORIDE
  16. PREGABALIN [Concomitant]
     Active Substance: PREGABALIN
  17. INSULIN LISPRO [Concomitant]
     Active Substance: INSULIN LISPRO
  18. LANTUS SOLOSTAR [Concomitant]
     Active Substance: INSULIN GLARGINE
  19. DOCUSATE SODIUM\SENNOSIDES [Concomitant]
     Active Substance: DOCUSATE SODIUM\SENNOSIDES
  20. AMLODIPINE [Concomitant]
     Active Substance: AMLODIPINE BESYLATE
  21. CARVEDILOL [Concomitant]
     Active Substance: CARVEDILOL
  22. FUROSEMIDE [Concomitant]
     Active Substance: FUROSEMIDE
  23. PLAVIX [Concomitant]
     Active Substance: CLOPIDOGREL BISULFATE
  24. CETIRIZINE [Concomitant]
     Active Substance: CETIRIZINE HYDROCHLORIDE
  25. ALBUTEROL [Concomitant]
     Active Substance: ALBUTEROL
  26. COENZYME Q10 [Concomitant]
     Active Substance: DIETARY SUPPLEMENT\UBIDECARENONE
  27. Dexcom Receiver [Concomitant]
  28. ASPIRIN [Concomitant]
     Active Substance: ASPIRIN
  29. VITAMIN D3 [Concomitant]
     Active Substance: CHOLECALCIFEROL

REACTIONS (4)
  - Recalled product administered [None]
  - Application site erythema [None]
  - Application site pain [None]
  - Application site pain [None]

NARRATIVE: CASE EVENT DATE: 20230426
